FAERS Safety Report 11655673 (Version 1)
Quarter: 2015Q4

REPORT INFORMATION
  Report Type: Spontaneous
  Country: US (occurrence: US)
  Receive Date: 20151023
  Receipt Date: 20151023
  Transmission Date: 20160304
  Serious: No
  Sender: FDA-Public Use
  Company Number: US-BAUSCH-BL-2014-008916

PATIENT
  Sex: Female
  Weight: 43.58 kg

DRUGS (4)
  1. PREVACID 60MG [Concomitant]
     Indication: PRODUCT USED FOR UNKNOWN INDICATION
  2. EVISTA [Concomitant]
     Active Substance: RALOXIFENE HYDROCHLORIDE
     Indication: PRODUCT USED FOR UNKNOWN INDICATION
  3. ZOLOFT [Concomitant]
     Active Substance: SERTRALINE HYDROCHLORIDE
     Indication: PRODUCT USED FOR UNKNOWN INDICATION
  4. CHLORDIAZEPOXIDE HYDROCHLORIDE/CLIDINIUM BROMIDE [Suspect]
     Active Substance: CHLORDIAZEPOXIDE HYDROCHLORIDE\CLIDINIUM BROMIDE
     Indication: CREST SYNDROME
     Route: 048
     Dates: start: 201409

REACTIONS (3)
  - Dysgeusia [Recovered/Resolved]
  - Hunger [Recovered/Resolved]
  - Gastrooesophageal reflux disease [Recovered/Resolved]
